FAERS Safety Report 8123349-8 (Version None)
Quarter: 2012Q1

REPORT INFORMATION
  Report Type: 
  Country: None (occurrence: None)
  Receive Date: 20120208
  Receipt Date: 20120201
  Transmission Date: 20120608
  Serious: Yes (Hospitalization, Other)
  Sender: FDA-Public Use
  Company Number: US-PFIZER INC-2012012303

PATIENT
  Sex: Female
  Weight: 40.816 kg

DRUGS (2)
  1. LEVOTHYROXINE [Concomitant]
     Indication: THYROID DISORDER
     Dosage: 50 UG, 1X/DAY
  2. XALATAN [Suspect]
     Indication: GLAUCOMA
     Dosage: ONE DROP IN EACH EYE (OU) DAILY AT BEDTIME (HS)
     Route: 047
     Dates: start: 20020501

REACTIONS (2)
  - CORONARY ARTERY OCCLUSION [None]
  - HYPERTENSION [None]
